FAERS Safety Report 7191059-X (Version None)
Quarter: 2010Q4

REPORT INFORMATION
  Report Type: 
  Country: None (occurrence: None)
  Receive Date: 20101222
  Receipt Date: 20101222
  Transmission Date: 20110411
  Serious: No
  Sender: FDA-Public Use
  Company Number: None

PATIENT
  Sex: Female
  Weight: 68.0396 kg

DRUGS (1)
  1. PROPOXYPHENE HCL AND ACETAMINOPHEN [Suspect]
     Indication: BACK PAIN
     Dosage: 100-650AG 1 EVERY 6 HRS. MOUTH
     Route: 048
     Dates: start: 20101001

REACTIONS (2)
  - CARDIAC FLUTTER [None]
  - PRODUCT QUALITY ISSUE [None]
